FAERS Safety Report 6171397-X (Version None)
Quarter: 2009Q2

REPORT INFORMATION
  Report Type: 
  Country: None (occurrence: None)
  Receive Date: 20090429
  Receipt Date: 20090420
  Transmission Date: 20091009
  Serious: Yes (Other)
  Sender: FDA-Public Use
  Company Number: US-AMGEN-QUU342122

PATIENT
  Sex: Male
  Weight: 83.5 kg

DRUGS (5)
  1. ENBREL [Suspect]
     Indication: PSORIASIS
     Route: 058
     Dates: start: 20080111
  2. MS CONTIN [Suspect]
  3. OXYCODONE [Suspect]
  4. DESIPRAMINE HCL [Concomitant]
  5. MIRALAX [Concomitant]

REACTIONS (2)
  - MUSCLE ATROPHY [None]
  - WEIGHT DECREASED [None]
